FAERS Safety Report 8762871 (Version 1)
Quarter: 2012Q4

REPORT INFORMATION
  Report Type: 
  Country: US (occurrence: US)
  Receive Date: 20120829
  Receipt Date: 20120829
  Transmission Date: 20130627
  Serious: No
  Sender: FDA-Public Use
  Company Number: US-PFIZER INC-2012208949

PATIENT
  Sex: Male

DRUGS (2)
  1. ADVIL [Suspect]
     Indication: JOINT INJURY
     Dosage: UNK
     Dates: start: 20120826
  2. VISINE FOR CONTACTS [Suspect]
     Indication: CONTACT LENS THERAPY
     Dosage: UNK
     Route: 047

REACTIONS (2)
  - Ocular hyperaemia [Not Recovered/Not Resolved]
  - Eye oedema [Not Recovered/Not Resolved]
